FAERS Safety Report 19097805 (Version 1)
Quarter: 2021Q2

REPORT INFORMATION
  Report Type: Spontaneous
  Country: US (occurrence: US)
  Receive Date: 20210406
  Receipt Date: 20210406
  Transmission Date: 20210717
  Serious: Yes (Hospitalization)
  Sender: FDA-Public Use
  Company Number: None

PATIENT
  Age: 80 Year
  Sex: Female
  Weight: 67.5 kg

DRUGS (12)
  1. SIMVASTATIN 40MG [Concomitant]
     Active Substance: SIMVASTATIN
  2. MEGESTEROL 20MG [Concomitant]
  3. LORATADINE 10MG [Concomitant]
     Active Substance: LORATADINE
  4. NITROGLYCERIN 0.4MG [Concomitant]
  5. MEDROL [Concomitant]
     Active Substance: METHYLPREDNISOLONE
  6. NORCO [Concomitant]
     Active Substance: ACETAMINOPHEN\HYDROCODONE BITARTRATE
  7. IBRANCE [Suspect]
     Active Substance: PALBOCICLIB
     Indication: BREAST CANCER
     Route: 048
     Dates: start: 20181129
  8. VITAMIN D [Concomitant]
     Active Substance: VITAMIN D NOS
  9. ANASTROZOLE 1MG [Concomitant]
     Active Substance: ANASTROZOLE
  10. EZETIMIBE 10MG [Concomitant]
     Active Substance: EZETIMIBE
  11. HYDROCHLOROTHIAZIDE 25MG [Concomitant]
     Active Substance: HYDROCHLOROTHIAZIDE
  12. FUROSEMIDE 40MG [Concomitant]
     Active Substance: FUROSEMIDE

REACTIONS (1)
  - Hospitalisation [None]

NARRATIVE: CASE EVENT DATE: 20210406
